FAERS Safety Report 6695235 (Version 7)
Quarter: 2021Q3

REPORT INFORMATION
  Report Type: Report from Study
  Country: NL (occurrence: NL)
  Receive Date: 20080710
  Receipt Date: 20210901
  Transmission Date: 20211014
  Serious: Yes (Death, Hospitalization, Other)
  Sender: FDA-Public Use
  Company Number: NL-GENZYME-200821136GPV

PATIENT
  Age: 41 Year
  Sex: Male

DRUGS (25)
  1. ALEMTUZUMAB [Suspect]
     Active Substance: ALEMTUZUMAB
     Dosage: 30 MG,1X,  INJECTION DAY 10 OF CHOP CYCLE
     Route: 058
     Dates: start: 2006, end: 2006
  2. ALEMTUZUMAB [Suspect]
     Active Substance: ALEMTUZUMAB
     Dosage: 30 MG, 3 DOSES OF 30 MG AT DAYS 1, 5 AND 10 PER INJECTION
     Route: 058
     Dates: start: 2006, end: 2006
  3. VALACICLOVIR [Concomitant]
     Active Substance: VALACYCLOVIR HYDROCHLORIDE
     Indication: ANTIVIRAL PROPHYLAXIS
     Dosage: 500 MG,BID
     Route: 065
     Dates: end: 20060803
  4. FLUCONAZOLE. [Concomitant]
     Active Substance: FLUCONAZOLE
     Indication: ANTIFUNGAL PROPHYLAXIS
     Dosage: 100?150 MG,QD
     Route: 065
  5. PARACETAMOL [Concomitant]
     Active Substance: ACETAMINOPHEN
     Indication: PREMEDICATION
     Dosage: 1000 MG
     Route: 065
  6. ALEMTUZUMAB [Suspect]
     Active Substance: ALEMTUZUMAB
     Indication: PERIPHERAL T-CELL LYMPHOMA UNSPECIFIED STAGE III
     Dosage: 3 MG,1X, INJECTION DAY 1 OF CHOP CYCLE
     Route: 058
     Dates: start: 2006, end: 2006
  7. ALEMTUZUMAB [Suspect]
     Active Substance: ALEMTUZUMAB
     Dosage: 30 MG, 3 DOSES OF 30 MG AT DAYS 1, 5 AND 10 PER INJECTION
     Route: 058
     Dates: start: 2006, end: 2006
  8. ALEMTUZUMAB [Suspect]
     Active Substance: ALEMTUZUMAB
     Dosage: 30 MG, 3 DOSES OF 30 MG AT DAYS 1, 5 AND 10 PER INJECTION
     Route: 058
     Dates: start: 2006, end: 2006
  9. ALEMTUZUMAB [Suspect]
     Active Substance: ALEMTUZUMAB
     Dosage: 10 MG,1X, INJECTION DAY 5 OF CHOP CYCLE
     Route: 058
     Dates: start: 2006, end: 2006
  10. ALLOPURINOL. [Concomitant]
     Active Substance: ALLOPURINOL
     Indication: PROPHYLAXIS
     Dosage: 300 MG
     Route: 065
  11. OXYCODONE HYDROCHLORIDE. [Concomitant]
     Active Substance: OXYCODONE HYDROCHLORIDE
     Dosage: 5 MG,QD
     Dates: end: 20060622
  12. ALEMTUZUMAB [Suspect]
     Active Substance: ALEMTUZUMAB
     Dosage: 30 MG, 3 DOSES OF 30 MG AT DAYS 1, 5 AND 10 PER INJECTION
     Route: 058
     Dates: start: 2006, end: 2006
  13. ALEMTUZUMAB [Suspect]
     Active Substance: ALEMTUZUMAB
     Dosage: 30 MG, 3 DOSES OF 30 MG AT DAYS 1, 5 AND 10 PER INJECTION
     Route: 058
     Dates: start: 2006, end: 2006
  14. ALEMTUZUMAB [Suspect]
     Active Substance: ALEMTUZUMAB
     Dosage: 30 MG, 3 DOSES OF 30 MG AT DAYS 1, 5 AND 10 PER INJECTION
     Route: 058
     Dates: start: 2006, end: 200610
  15. ESOMEPRAZOLE SODIUM. [Concomitant]
     Active Substance: ESOMEPRAZOLE SODIUM
     Dosage: 40 MG,QD
     Dates: end: 20060622
  16. DOMPERIDONE MALEATE [Concomitant]
     Active Substance: DOMPERIDONE MALEATE
     Dosage: 20 MG,QD
     Dates: end: 20060622
  17. PEGFILGRASTIM [Concomitant]
     Active Substance: PEGFILGRASTIM
     Dosage: 6 MG,PRN BEFORE BEDTIME
     Route: 058
  18. ALEMTUZUMAB [Suspect]
     Active Substance: ALEMTUZUMAB
     Dosage: 30 MG, 3 DOSES OF 30 MG AT DAYS 1, 5 AND 10 PER INJECTION
     Route: 058
     Dates: start: 2006, end: 2006
  19. VINCRISTINE SULFATE. [Suspect]
     Active Substance: VINCRISTINE SULFATE
     Indication: PERIPHERAL T-CELL LYMPHOMA UNSPECIFIED STAGE III
     Dosage: 1.4 MG/M2, QOW (MAXIMUM OF 2 MG)
     Route: 042
     Dates: start: 2006, end: 200610
  20. PREDNISONE. [Suspect]
     Active Substance: PREDNISONE
     Indication: PERIPHERAL T-CELL LYMPHOMA UNSPECIFIED STAGE III
     Dosage: 100 MG, QD (DAY 1?5 IN 14 DAY CYCLE)
     Route: 048
     Dates: start: 2006, end: 200610
  21. COTRIMOXAZOLE [Concomitant]
     Active Substance: SULFAMETHOXAZOLE\TRIMETHOPRIM
     Dosage: 960 MG, BID
     Route: 065
     Dates: start: 200609
  22. CYCLOPHOSPHAMIDE. [Suspect]
     Active Substance: CYCLOPHOSPHAMIDE
     Indication: PERIPHERAL T-CELL LYMPHOMA UNSPECIFIED STAGE III
     Dosage: 750 MG, QOW
     Route: 042
     Dates: start: 2006, end: 200610
  23. DOXORUBICIN [Suspect]
     Active Substance: DOXORUBICIN
     Indication: PERIPHERAL T-CELL LYMPHOMA UNSPECIFIED STAGE III
     Dosage: 50 MG/M2, QOW
     Route: 042
     Dates: start: 2006, end: 200610
  24. COTRIMOXAZOLE [Concomitant]
     Active Substance: SULFAMETHOXAZOLE\TRIMETHOPRIM
     Indication: INFECTION PROPHYLAXIS
     Dosage: 480 MG,BID
     Route: 065
  25. VALGANCICLOVIR. [Concomitant]
     Active Substance: VALGANCICLOVIR
     Dosage: 900 MG,QD
     Dates: start: 20060627

REACTIONS (14)
  - Nausea [Recovered/Resolved]
  - Disease progression [Fatal]
  - T-cell lymphoma [Unknown]
  - Febrile neutropenia [Recovered/Resolved]
  - Febrile neutropenia [Recovered/Resolved]
  - Vomiting [Recovered/Resolved]
  - Haemophagocytic lymphohistiocytosis [Fatal]
  - Vomiting [Recovered/Resolved]
  - Febrile neutropenia [Recovered/Resolved]
  - Abdominal pain upper [Recovered/Resolved]
  - Epstein-Barr virus associated lymphoproliferative disorder [Fatal]
  - Febrile neutropenia [Recovered/Resolved]
  - Cytomegalovirus infection reactivation [Unknown]
  - Abdominal pain [Recovered/Resolved]

NARRATIVE: CASE EVENT DATE: 2006
